FAERS Safety Report 6029156-4 (Version None)
Quarter: 2009Q1

REPORT INFORMATION
  Report Type: 
  Country: None (occurrence: None)
  Receive Date: 20090106
  Receipt Date: 20080903
  Transmission Date: 20090719
  Serious: No
  Sender: FDA-Public Use
  Company Number: US-TYCO HEALTHCARE/MALLINCKRODT-T200801453

PATIENT

DRUGS (7)
  1. OPTIMARK [Suspect]
     Indication: NUCLEAR MAGNETIC RESONANCE IMAGING BRAIN
     Dosage: 15 ML, SINGLE
     Dates: start: 20080826, end: 20080826
  2. CELEBREX [Concomitant]
  3. NIFEREX                            /01214501/ [Concomitant]
  4. ANTIVERT                           /00007101/ [Concomitant]
  5. XANAX [Concomitant]
  6. BENTYL [Concomitant]
  7. PENTASE [Concomitant]

REACTIONS (1)
  - FEELING HOT [None]
